FAERS Safety Report 11082347 (Version 2)
Quarter: 2015Q2

REPORT INFORMATION
  Report Type: Spontaneous
  Country: US (occurrence: US)
  Receive Date: 20150501
  Receipt Date: 20150619
  Transmission Date: 20150821
  Serious: Yes (Hospitalization, Other)
  Sender: FDA-Public Use
  Company Number: US-INCYTE CORPORATION-2015IN001770

PATIENT
  Age: 61 Year
  Sex: Female
  Weight: 78 kg

DRUGS (26)
  1. PROBIOTIC                          /06395501/ [Concomitant]
  2. METOPROLOL [Concomitant]
     Active Substance: METOPROLOL
  3. FISH OIL [Concomitant]
     Active Substance: FISH OIL
  4. MULTIVITAMIN                       /00097801/ [Concomitant]
     Active Substance: VITAMINS
  5. VITAMIN C [Concomitant]
     Active Substance: ASCORBIC ACID
  6. LATANOPROST. [Concomitant]
     Active Substance: LATANOPROST
  7. HYDROCODONE [Concomitant]
     Active Substance: HYDROCODONE
  8. DIAZEPAM. [Concomitant]
     Active Substance: DIAZEPAM
  9. HYDROXYZINE [Concomitant]
     Active Substance: HYDROXYZINE\HYDROXYZINE HYDROCHLORIDE
  10. ACYCLOVIR                          /00587301/ [Concomitant]
     Active Substance: ACYCLOVIR
  11. FIBER [Concomitant]
     Active Substance: PSYLLIUM HUSK
  12. AZELASTINE [Concomitant]
     Active Substance: AZELASTINE
  13. OXYCODONE AND ACETAMINOPHEN [Concomitant]
     Active Substance: ACETAMINOPHEN\OXYCODONE\OXYCODONE HYDROCHLORIDE
  14. LUTEIN                             /01638501/ [Concomitant]
     Active Substance: LUTEIN
  15. JAKAFI [Suspect]
     Active Substance: RUXOLITINIB
     Indication: MYELOFIBROSIS
     Dosage: 25 MG, BID
     Route: 048
     Dates: start: 20140918, end: 20150423
  16. ASPIRIN. [Concomitant]
     Active Substance: ASPIRIN
  17. CLONIDINE. [Concomitant]
     Active Substance: CLONIDINE
  18. LISINOPRIL. [Concomitant]
     Active Substance: LISINOPRIL
  19. ONDANSETRON [Concomitant]
     Active Substance: ONDANSETRON
  20. VALIUM [Concomitant]
     Active Substance: DIAZEPAM
  21. HYDROXYZINE [Concomitant]
     Active Substance: HYDROXYZINE\HYDROXYZINE HYDROCHLORIDE
  22. VITAMIN D3 [Concomitant]
     Active Substance: CHOLECALCIFEROL
  23. SIMCOR                             /00848101/ [Concomitant]
  24. NIACIN. [Concomitant]
     Active Substance: NIACIN
  25. ANAGRELIDE [Concomitant]
     Active Substance: ANAGRELIDE
  26. PROAIR HFA [Concomitant]
     Active Substance: ALBUTEROL SULFATE

REACTIONS (1)
  - Splenectomy [Unknown]

NARRATIVE: CASE EVENT DATE: 20150423
